FAERS Safety Report 5363678-4 (Version None)
Quarter: 2007Q2

REPORT INFORMATION
  Report Type: 
  Country: None (occurrence: None)
  Receive Date: 20070620
  Receipt Date: 20070612
  Transmission Date: 20071010
  Serious: Yes (Other)
  Sender: FDA-Public Use
  Company Number: NZ-AVENTIS-200715268GDDC

PATIENT
  Age: 66 Year
  Sex: Male

DRUGS (2)
  1. FLUOROURACIL [Suspect]
     Dosage: DOSE: 750 MG
     Route: 040
  2. CALCIUM FOLINATE [Suspect]
     Dosage: DOSE: 35 MG
     Route: 040

REACTIONS (1)
  - HEPATOCELLULAR DAMAGE [None]
